FAERS Safety Report 9499729 (Version 1)
Quarter: 2013Q1

REPORT INFORMATION
  Report Type: Spontaneous
  Country: US (occurrence: None)
  Receive Date: 20130118
  Receipt Date: 20130118
  Transmission Date: 20140127
  Serious: No
  Sender: FDA-Public Use
  Company Number: A-US2012-60993

PATIENT
  Age: 65 Year
  Sex: Female

DRUGS (3)
  1. TRACLEER [Suspect]
     Indication: PULMONARY ARTERIAL HYPERTENSION
     Route: 048
     Dates: start: 20110922
  2. REVATIO (SILDEDNAFIL CITRATE) [Concomitant]
  3. TIKOSYN (DOFETILIDE) [Concomitant]

REACTIONS (5)
  - Oedema peripheral [None]
  - Fluid retention [None]
  - Oedema [None]
  - Weight increased [None]
  - Dyspnoea [None]
